FAERS Safety Report 9990389 (Version 1)
Quarter: 2014Q1

REPORT INFORMATION
  Report Type: Report from Study
  Country: US (occurrence: US)
  Receive Date: 20140310
  Receipt Date: 20140310
  Transmission Date: 20141002
  Serious: No
  Sender: FDA-Public Use
  Company Number: US-ABBVIE-13P-163-1134664-00

PATIENT
  Sex: Female
  Weight: 65.83 kg

DRUGS (8)
  1. HUMIRA [Suspect]
     Indication: RHEUMATOID ARTHRITIS
     Dates: start: 201211, end: 201305
  2. METHOTREXATE [Concomitant]
     Indication: RHEUMATOID ARTHRITIS
  3. METHYLPREDNISOLONE [Concomitant]
     Indication: RHEUMATOID ARTHRITIS
  4. VERAOAMIL CR [Concomitant]
     Indication: MIGRAINE
  5. FOLIC ACID [Concomitant]
     Indication: DRUG THERAPY
  6. ALEVE [Concomitant]
     Indication: MIGRAINE
  7. MOTRIN [Concomitant]
     Indication: MIGRAINE
  8. TREXIMET [Concomitant]
     Indication: MIGRAINE

REACTIONS (2)
  - Drug ineffective [Not Recovered/Not Resolved]
  - Arthralgia [Not Recovered/Not Resolved]
